FAERS Safety Report 6474541-X (Version None)
Quarter: 2009Q4

REPORT INFORMATION
  Report Type: 
  Country: None (occurrence: None)
  Receive Date: 20091123
  Receipt Date: 20090828
  Transmission Date: 20100525
  Serious: No
  Sender: FDA-Public Use
  Company Number: 8051287

PATIENT
  Age: 26 Year
  Sex: Male

DRUGS (1)
  1. CIMZIA [Suspect]
     Indication: CROHN'S DISEASE
     Dosage: 400 MG
     Dates: start: 20081023

REACTIONS (3)
  - CROHN'S DISEASE [None]
  - RHINORRHOEA [None]
  - SEASONAL ALLERGY [None]
